FAERS Safety Report 7728142-3 (Version None)
Quarter: 2011Q3

REPORT INFORMATION
  Report Type: 
  Country: None (occurrence: None)
  Receive Date: 20110905
  Receipt Date: 20110831
  Transmission Date: 20111222
  Serious: Yes (Life-Threatening, Hospitalization)
  Sender: FDA-Public Use
  Company Number: JP-BRISTOL-MYERS SQUIBB COMPANY-15932569

PATIENT
  Age: 57 Year
  Sex: Female
  Weight: 51 kg

DRUGS (3)
  1. ORENCIA [Suspect]
     Indication: MUSCULOSKELETAL PAIN
     Route: 041
     Dates: start: 20110510
  2. METHOTREXATE [Suspect]
     Route: 048
  3. PREDNISOLONE [Suspect]

REACTIONS (2)
  - INTERSTITIAL LUNG DISEASE [None]
  - PNEUMOCYSTIS JIROVECI PNEUMONIA [None]
